FAERS Safety Report 9134925 (Version 1)
Quarter: 2013Q1

REPORT INFORMATION
  Report Type: Spontaneous
  Country: US (occurrence: US)
  Receive Date: 20130304
  Receipt Date: 20130304
  Transmission Date: 20140127
  Serious: Yes (Hospitalization)
  Sender: FDA-Public Use
  Company Number: US-PFIZER INC-2013072527

PATIENT
  Age: 49 Year
  Sex: Female
  Weight: 77.1 kg

DRUGS (3)
  1. EFFEXOR [Suspect]
     Dosage: 150 MG, 2X/DAY
  2. PREMARIN [Suspect]
     Indication: HYSTERECTOMY
     Dosage: 1.25MG IN MORNING AND 0.625MG IN THE NIGHT
     Route: 048
  3. LYRICA [Suspect]
     Indication: NEURALGIA
     Dosage: 50 MG, 2X/DAY

REACTIONS (2)
  - Back disorder [Unknown]
  - Memory impairment [Not Recovered/Not Resolved]
